FAERS Safety Report 4451497-2 (Version None)
Quarter: 2004Q3

REPORT INFORMATION
  Report Type: 
  Country: None (occurrence: None)
  Receive Date: 20040915
  Receipt Date: 20040831
  Transmission Date: 20050211
  Serious: Yes (Hospitalization)
  Sender: FDA-Public Use
  Company Number: 2004-DE-04487DE

PATIENT
  Age: 88 Year
  Sex: Female

DRUGS (6)
  1. AGGRENOX [Suspect]
     Indication: CEREBRAL ISCHAEMIA
     Dosage: 1 ANZ (SEE TEXT, 0-1-0) PO; DURATION: ONCE
     Route: 048
     Dates: start: 20040822, end: 20040822
  2. LEVOTHYROXINE SODIUM [Concomitant]
  3. OXAZEPAM [Concomitant]
  4. RAMIPRIL [Concomitant]
  5. ATORVASTATIN CALCIUM [Concomitant]
  6. HEPARIN [Concomitant]

REACTIONS (4)
  - ANGINA PECTORIS [None]
  - CARDIAC ENZYMES INCREASED [None]
  - MYOCARDIAL INFARCTION [None]
  - MYOCARDIAL ISCHAEMIA [None]
